FAERS Safety Report 12364533 (Version 2)
Quarter: 2016Q3

REPORT INFORMATION
  Report Type: Spontaneous
  Country: FR (occurrence: FR)
  Receive Date: 20160513
  Receipt Date: 20160811
  Transmission Date: 20161109
  Serious: Yes (Hospitalization)
  Sender: FDA-Public Use
  Company Number: FR-INCYTE CORPORATION-2016IN002649

PATIENT
  Age: 66 Year
  Sex: Female

DRUGS (13)
  1. FLECAINE [Concomitant]
     Active Substance: FLECAINIDE
     Indication: PRODUCT USED FOR UNKNOWN INDICATION
     Dosage: 1 DF, QD
     Route: 048
  2. CREON [Concomitant]
     Active Substance: PANCRELIPASE AMYLASE\PANCRELIPASE LIPASE\PANCRELIPASE PROTEASE
     Indication: PANCREATIC INSUFFICIENCY
     Dosage: 1 DF, 6 TIMES DAILY
     Route: 048
  3. CREON [Concomitant]
     Active Substance: PANCRELIPASE AMYLASE\PANCRELIPASE LIPASE\PANCRELIPASE PROTEASE
  4. MOPRAL [Concomitant]
     Active Substance: OMEPRAZOLE SODIUM
     Indication: GASTROINTESTINAL DISORDER
     Dosage: 1 DF, QD
     Route: 048
  5. KARDEGIC [Concomitant]
     Active Substance: ASPIRIN LYSINE
     Indication: ATRIAL FIBRILLATION
     Dosage: 1 DF, UNK
     Route: 048
  6. KARDEGIC [Concomitant]
     Active Substance: ASPIRIN LYSINE
     Dosage: 1 DF, UNK
     Route: 048
  7. URSOLVAN [Concomitant]
     Active Substance: URSODIOL
     Indication: CHOLELITHIASIS
     Dosage: 3 DF, BID
     Route: 048
  8. BISOPROLOL [Concomitant]
     Active Substance: BISOPROLOL
     Indication: PRODUCT USED FOR UNKNOWN INDICATION
     Dosage: 2.5 UG, BID
     Route: 048
  9. BISOPROLOL [Concomitant]
     Active Substance: BISOPROLOL
     Dosage: 2.5 UG, BID
     Route: 048
  10. JAKAFI [Suspect]
     Active Substance: RUXOLITINIB
     Indication: MYELOPROLIFERATIVE NEOPLASM
     Dosage: 1 DF, BID
     Route: 048
     Dates: start: 201508, end: 20160315
  11. MOPRAL [Concomitant]
     Active Substance: OMEPRAZOLE SODIUM
     Dosage: 1 DF, QD
     Route: 048
  12. FLECAINE [Concomitant]
     Active Substance: FLECAINIDE
     Dosage: 1 DF, QD
     Route: 048
  13. ZYLORIC [Concomitant]
     Active Substance: ALLOPURINOL
     Indication: PRODUCT USED FOR UNKNOWN INDICATION
     Dosage: 1 DF, QD
     Route: 048

REACTIONS (1)
  - Bacterial sepsis [Recovered/Resolved]

NARRATIVE: CASE EVENT DATE: 20160224
